FAERS Safety Report 10006189 (Version 1)
Quarter: 2014Q1

REPORT INFORMATION
  Report Type: Spontaneous
  Country: JP (occurrence: JP)
  Receive Date: 20140313
  Receipt Date: 20140313
  Transmission Date: 20141002
  Serious: Yes (Other)
  Sender: FDA-Public Use
  Company Number: JP-ASTELLAS-2014JP002130

PATIENT
  Sex: Male

DRUGS (4)
  1. BETANIS [Suspect]
     Dosage: 50 MG, UID/QD
     Route: 048
  2. LOXOPROFEN                         /00890702/ [Concomitant]
     Route: 048
  3. BAKTAR [Concomitant]
     Route: 048
  4. ROZEREM [Concomitant]
     Route: 048

REACTIONS (1)
  - Hepatic function abnormal [Unknown]
